FAERS Safety Report 4698145-4 (Version None)
Quarter: 2005Q2

REPORT INFORMATION
  Report Type: 
  Country: None (occurrence: None)
  Receive Date: 20050623
  Receipt Date: 20050512
  Transmission Date: 20051028
  Serious: Yes (Other)
  Sender: FDA-Public Use
  Company Number: US-GLAXOSMITHKLINE-A0558361A

PATIENT
  Age: 40 Year
  Sex: Female

DRUGS (4)
  1. LAMICTAL [Suspect]
     Indication: BIPOLAR DISORDER
     Route: 048
     Dates: start: 20031001
  2. ZYPREXA [Concomitant]
     Dosage: 5MG AT NIGHT
     Route: 048
     Dates: start: 20001201
  3. XANAX [Concomitant]
     Dosage: .5MG AS REQUIRED
     Route: 048
     Dates: start: 20020101
  4. TEGRETOL [Concomitant]
     Dosage: 200MG TWICE PER DAY
     Route: 048
     Dates: start: 19950101

REACTIONS (3)
  - CHEST PAIN [None]
  - PERICARDIAL EFFUSION [None]
  - VIRAL INFECTION [None]
